FAERS Safety Report 21675237 (Version 1)
Quarter: 2022Q4

REPORT INFORMATION
  Report Type: Spontaneous
  Country: PL (occurrence: PL)
  Receive Date: 20221202
  Receipt Date: 20221202
  Transmission Date: 20230113
  Serious: Yes (Other)
  Sender: FDA-Public Use
  Company Number: PL-002147023-NVSC2022PL220692

PATIENT
  Age: 48 Year
  Sex: Male

DRUGS (2)
  1. ADALIMUMAB [Suspect]
     Active Substance: ADALIMUMAB
     Indication: Product used for unknown indication
     Dosage: 80 MG, Q2W
     Route: 065
  2. ADALIMUMAB [Suspect]
     Active Substance: ADALIMUMAB
     Dosage: UNK
     Route: 065

REACTIONS (7)
  - Pulmonary tuberculosis [Unknown]
  - Tuberculosis [Unknown]
  - Pyrexia [Not Recovered/Not Resolved]
  - Malaise [Unknown]
  - Psoriasis [Unknown]
  - Hyperhidrosis [Unknown]
  - Drug ineffective [Unknown]
